FAERS Safety Report 8606959-0 (Version None)
Quarter: 2012Q3

REPORT INFORMATION
  Report Type: 
  Country: None (occurrence: None)
  Receive Date: 20120820
  Receipt Date: 20120808
  Transmission Date: 20120928
  Serious: Yes (Hospitalization, Other)
  Sender: FDA-Public Use
  Company Number: US-PFIZER INC-2012062050

PATIENT
  Age: 41 Year
  Sex: Female

DRUGS (5)
  1. DILANTIN [Suspect]
     Indication: CONVULSION
     Dosage: 300 MG, 1X/DAY AT BED TIME
     Route: 048
     Dates: start: 20081228
  2. DILANTIN [Suspect]
     Dosage: 300 MG, AT BEDTIME
     Route: 048
     Dates: start: 20090124
  3. DILANTIN [Suspect]
     Dosage: 300 MG, (100MG CAPSULE ORALLY IN THE MORNING AND 100MG 2 CAPSULES AT BED TIME)
     Route: 048
     Dates: start: 20090103
  4. DILANTIN [Suspect]
     Dosage: 100 MG, UNK
     Route: 048
     Dates: start: 20090102
  5. DILANTIN [Suspect]
     Dosage: 1000 MG, UNK
     Route: 042
     Dates: start: 20090103

REACTIONS (1)
  - STEVENS-JOHNSON SYNDROME [None]
